FAERS Safety Report 15500371 (Version 1)
Quarter: 2018Q4

REPORT INFORMATION
  Report Type: Spontaneous
  Country: US (occurrence: US)
  Receive Date: 20181015
  Receipt Date: 20181015
  Transmission Date: 20190205
  Serious: Yes (Other)
  Sender: FDA-Public Use
  Company Number: None

PATIENT
  Age: 56 Year
  Sex: Female
  Weight: 72.45 kg

DRUGS (3)
  1. AIMOVIG [Suspect]
     Active Substance: ERENUMAB-AOOE
     Indication: MIGRAINE
     Route: 058
     Dates: start: 20181006, end: 20181006
  2. BOTULINUM TOXIN [Concomitant]
     Active Substance: BOTULINUM TOXIN NOS
  3. TIZANIDINE. [Concomitant]
     Active Substance: TIZANIDINE

REACTIONS (7)
  - Mouth swelling [None]
  - Nausea [None]
  - Pain [None]
  - Swollen tongue [None]
  - Rash [None]
  - Fatigue [None]
  - Headache [None]

NARRATIVE: CASE EVENT DATE: 20181006
